FAERS Safety Report 25218067 (Version 1)
Quarter: 2025Q2

REPORT INFORMATION
  Report Type: Spontaneous
  Country: CO (occurrence: CO)
  Receive Date: 20250421
  Receipt Date: 20250421
  Transmission Date: 20250717
  Serious: Yes (Life-Threatening, Other)
  Sender: NOVARTIS
  Company Number: CO-002147023-NVSC2025CO064786

PATIENT
  Sex: Male
  Weight: 100 kg

DRUGS (1)
  1. COSENTYX [Suspect]
     Active Substance: SECUKINUMAB
     Indication: Psoriasis
     Dosage: 300 MG, QMO (300 MG / 300/2 MG)
     Route: 058

REACTIONS (7)
  - Feeling abnormal [Unknown]
  - Product availability issue [Unknown]
  - Gait inability [Unknown]
  - Pain [Unknown]
  - Scratch [Unknown]
  - Haemorrhage [Unknown]
  - Psoriasis [Unknown]
